FAERS Safety Report 4514490-7 (Version None)
Quarter: 2004Q4

REPORT INFORMATION
  Report Type: 
  Country: None (occurrence: None)
  Receive Date: 20041126
  Receipt Date: 20041112
  Transmission Date: 20050328
  Serious: Yes (Other)
  Sender: FDA-Public Use
  Company Number: 0104-1965

PATIENT
  Age: 46 Year
  Sex: Female
  Weight: 79.3795 kg

DRUGS (5)
  1. ADVICOR [Suspect]
     Indication: HIGH DENSITY LIPOPROTEIN DECREASED
     Dosage: 1 TABLET(S) QHS PO
     Route: 048
     Dates: start: 20040601
  2. ADVICOR [Suspect]
     Indication: LOW DENSITY LIPOPROTEIN INCREASED
     Dosage: 1 TABLET(S) QHS PO
     Route: 048
     Dates: start: 20040601
  3. LISINOPRIL [Concomitant]
  4. HYDROCHLOROTHIAZIDE [Concomitant]
  5. ASPIRIN [Concomitant]

REACTIONS (8)
  - ANAL DISCOMFORT [None]
  - BLADDER DISCOMFORT [None]
  - HEPATIC STEATOSIS [None]
  - HEPATOMEGALY [None]
  - MENORRHAGIA [None]
  - OLIGOMENORRHOEA [None]
  - PLATELET COUNT DECREASED [None]
  - VULVOVAGINAL DISCOMFORT [None]
